FAERS Safety Report 10388712 (Version 1)
Quarter: 2014Q1

REPORT INFORMATION
  Report Type: Spontaneous
  Country: US (occurrence: None)
  Receive Date: 20140306
  Receipt Date: 20140306
  Transmission Date: 20141002
  Serious: Yes (Hospitalization, Other)
  Sender: FDA-Public Use
  Company Number: 163-21880-13071132

PATIENT
  Age: 66 Year
  Sex: Male

DRUGS (8)
  1. REVLIMID (LENALIDOMIDE) (25 MILLIGRAM, CAPSULES) [Suspect]
     Indication: PLASMA CELL MYELOMA
     Dosage: 25MG, 14 IN 21 D, PO
     Route: 048
     Dates: start: 20130503, end: 20130701
  2. STEROID (OTHER THERAPEUTIC PRODUCTS) [Concomitant]
  3. BONE SHOT (OTHER THERAPEUTIC PRODUCTS) [Concomitant]
  4. PLAVIX (CLOPIDOGREL SULFATE) [Concomitant]
  5. COREG (CARVEDILOL) [Concomitant]
  6. INFECTION SHOT (OTHER THERAPEUTIC PRODUCTS) [Concomitant]
  7. INSULIN [Concomitant]
  8. CHEMOTHERAPY (OTHER THERAPEUTIC PRODUCTS) [Concomitant]

REACTIONS (6)
  - Angina pectoris [None]
  - Myocardial infarction [None]
  - Arrhythmia [None]
  - Infection [None]
  - Pain [None]
  - Headache [None]
